FAERS Safety Report 16995586 (Version 2)
Quarter: 2019Q4

REPORT INFORMATION
  Report Type: Spontaneous
  Country: FR (occurrence: FR)
  Receive Date: 20191105
  Receipt Date: 20191125
  Transmission Date: 20200122
  Serious: Yes (Other)
  Sender: FDA-Public Use
  Company Number: FR-PFIZER INC-2019473441

PATIENT
  Age: 74 Year
  Sex: Female

DRUGS (4)
  1. L-THYROXIN HENNING [Concomitant]
     Active Substance: LEVOTHYROXINE SODIUM
     Dosage: UNK
  2. RANITIDINE BIOGARAN [Concomitant]
     Indication: HYPERTENSION
     Dosage: UNK UNK, AS NEEDED (WHEN PROBLEMS)
  3. ZOCOR [Concomitant]
     Active Substance: SIMVASTATIN
     Dosage: 1 DF, DAILY
  4. SPIRONOLACTONE. [Suspect]
     Active Substance: SPIRONOLACTONE
     Indication: HYPERTENSION
     Dosage: UNK
     Dates: start: 20190507

REACTIONS (2)
  - Blood pressure increased [Recovered/Resolved]
  - Drug ineffective [Unknown]

NARRATIVE: CASE EVENT DATE: 20190702
